FAERS Safety Report 7720662-0 (Version None)
Quarter: 2011Q3

REPORT INFORMATION
  Report Type: 
  Country: None (occurrence: None)
  Receive Date: 20110831
  Receipt Date: 20110822
  Transmission Date: 20111222
  Serious: Yes (Other)
  Sender: FDA-Public Use
  Company Number: PHHY2011US58793

PATIENT
  Sex: Male
  Weight: 76.2 kg

DRUGS (3)
  1. EXJADE [Suspect]
     Indication: LEUKAEMIA
  2. EXJADE [Suspect]
     Indication: CHRONIC LYMPHOCYTIC LEUKAEMIA
     Dosage: 1000 MG, DAILY
     Route: 048
     Dates: start: 20090901
  3. EXJADE [Suspect]
     Indication: RENAL FAILURE CHRONIC

REACTIONS (3)
  - PNEUMONIA [None]
  - BLOOD COUNT ABNORMAL [None]
  - INFECTION [None]
